FAERS Safety Report 6105811-2 (Version None)
Quarter: 2009Q1

REPORT INFORMATION
  Report Type: 
  Country: None (occurrence: None)
  Receive Date: 20090306
  Receipt Date: 20090224
  Transmission Date: 20090719
  Serious: Yes (Other)
  Sender: FDA-Public Use
  Company Number: GB-JNJFOC-20090205933

PATIENT
  Age: 57 Year
  Sex: Female
  Weight: 57 kg

DRUGS (9)
  1. REMICADE [Suspect]
     Route: 042
  2. REMICADE [Suspect]
     Route: 042
  3. REMICADE [Suspect]
     Route: 042
  4. REMICADE [Suspect]
     Indication: RHEUMATOID ARTHRITIS
     Route: 042
  5. LEFLUNOMIDE [Concomitant]
     Indication: RHEUMATOID ARTHRITIS
     Route: 048
  6. NAPROXEN [Concomitant]
     Indication: RHEUMATOID ARTHRITIS
     Route: 048
  7. PREDNISOLONE [Concomitant]
     Indication: RHEUMATOID ARTHRITIS
     Route: 048
  8. PIRITON [Concomitant]
     Indication: PREMEDICATION
     Route: 042
  9. HYDROCORTISONE ACETATE [Concomitant]
     Indication: PREMEDICATION
     Route: 042

REACTIONS (11)
  - COLD SWEAT [None]
  - FEELING COLD [None]
  - FLUSHING [None]
  - INFUSION RELATED REACTION [None]
  - MALAISE [None]
  - MUSCLE TWITCHING [None]
  - NAUSEA [None]
  - PERIPHERAL CIRCULATORY FAILURE [None]
  - PRURITUS [None]
  - SOMNOLENCE [None]
  - VOMITING [None]
